FAERS Safety Report 7564596-3 (Version None)
Quarter: 2011Q2

REPORT INFORMATION
  Report Type: 
  Country: None (occurrence: None)
  Receive Date: 20110622
  Receipt Date: 20100805
  Transmission Date: 20111010
  Serious: Yes (Death, Hospitalization)
  Sender: FDA-Public Use
  Company Number: US-MYLANLABS-2010S1011090

PATIENT
  Age: 80 Year
  Sex: Female

DRUGS (3)
  1. CLOZAPINE [Suspect]
     Indication: DELUSION
     Route: 048
     Dates: start: 20080101, end: 20100401
  2. CLOZAPINE [Suspect]
     Indication: PSYCHOTIC DISORDER
     Route: 048
     Dates: start: 20080101, end: 20100401
  3. CLOZAPINE [Suspect]
     Indication: ABNORMAL BEHAVIOUR
     Route: 048
     Dates: start: 20080101, end: 20100401

REACTIONS (1)
  - DEATH [None]
